FAERS Safety Report 8244393-6 (Version None)
Quarter: 2012Q1

REPORT INFORMATION
  Report Type: 
  Country: None (occurrence: None)
  Receive Date: 20120329
  Receipt Date: 20120323
  Transmission Date: 20120608
  Serious: Yes (Other)
  Sender: FDA-Public Use
  Company Number: US-PFIZER INC-2012002688

PATIENT
  Sex: Male
  Weight: 94.785 kg

DRUGS (4)
  1. METOPROLOL [Concomitant]
     Dosage: 25 MG, UNK
  2. LIPITOR [Suspect]
     Indication: BLOOD CHOLESTEROL INCREASED
     Dosage: UNK, 1X/DAY
     Route: 048
     Dates: start: 20000101
  3. TRICOR [Concomitant]
     Dosage: 145 MG, 1X/DAY
  4. LISINOPRIL [Concomitant]
     Dosage: 20 MG, UNK

REACTIONS (1)
  - DIABETES MELLITUS [None]
